FAERS Safety Report 26188003 (Version 1)
Quarter: 2025Q4

REPORT INFORMATION
  Report Type: Report from Study
  Country: BR (occurrence: BR)
  Receive Date: 20251222
  Receipt Date: 20251222
  Transmission Date: 20260117
  Serious: Yes (Other)
  Sender: ABBVIE
  Company Number: BR-ABBVIE-6599383

PATIENT
  Age: 19 Year
  Sex: Female
  Weight: 98 kg

DRUGS (1)
  1. SKYRIZI [Suspect]
     Active Substance: RISANKIZUMAB-RZAA
     Indication: Psoriasis
     Route: 058

REACTIONS (8)
  - Appendicectomy [Recovered/Resolved]
  - Procedural pain [Not Recovered/Not Resolved]
  - Haematochezia [Not Recovered/Not Resolved]
  - Inappropriate schedule of product administration [Unknown]
  - Dandruff [Not Recovered/Not Resolved]
  - Skin exfoliation [Unknown]
  - Rash papular [Unknown]
  - Psoriasis [Unknown]

NARRATIVE: CASE EVENT DATE: 20230101
